FAERS Safety Report 15230059 (Version 1)
Quarter: 2018Q3

REPORT INFORMATION
  Report Type: Spontaneous
  Country: US (occurrence: US)
  Receive Date: 20180802
  Receipt Date: 20180802
  Transmission Date: 20181010
  Serious: Yes (Other)
  Sender: FDA-Public Use
  Company Number: US-ACCORD-063009

PATIENT
  Age: 52 Year
  Sex: Female
  Weight: 54.43 kg

DRUGS (6)
  1. ONDANSETRON [Concomitant]
     Active Substance: ONDANSETRON
  2. DOCETAXEL ACCORD [Suspect]
     Active Substance: DOCETAXEL
     Indication: BREAST CANCER
     Dosage: NO OF CYCLE: 05
     Route: 042
     Dates: start: 20150116, end: 20150409
  3. HYDROCHLOROTHIAZIDE/LISINOPRIL [Concomitant]
     Dosage: STRENGTH: 10?12.5 MG/ TABLET
     Route: 048
  4. ZESTORETIC [Concomitant]
     Active Substance: HYDROCHLOROTHIAZIDE\LISINOPRIL
     Dosage: STRENGTH: 10?12.5 MG/ TABLET
     Route: 048
  5. BIOTIN [Concomitant]
     Active Substance: BIOTIN
     Route: 048
  6. ROGAINE [Concomitant]
     Active Substance: MINOXIDIL

REACTIONS (1)
  - Alopecia [Not Recovered/Not Resolved]

NARRATIVE: CASE EVENT DATE: 20151009
